FAERS Safety Report 7894411-X (Version None)
Quarter: 2011Q4

REPORT INFORMATION
  Report Type: 
  Country: None (occurrence: None)
  Receive Date: 20111104
  Receipt Date: 20111102
  Transmission Date: 20120403
  Serious: Yes (Death, Hospitalization)
  Sender: FDA-Public Use
  Company Number: CA-ASTRAZENECA-2011SE64416

PATIENT
  Age: 79 Year
  Sex: Female

DRUGS (1)
  1. FASLODEX [Suspect]
     Indication: BREAST CANCER
     Dosage: MONTHLY
     Route: 030
     Dates: start: 20110826

REACTIONS (2)
  - BREAST CANCER METASTATIC [None]
  - PLEURAL EFFUSION [None]
